FAERS Safety Report 8810653 (Version 1)
Quarter: 2012Q4

REPORT INFORMATION
  Report Type: Spontaneous
  Country: US (occurrence: None)
  Receive Date: 20120924
  Receipt Date: 20120924
  Transmission Date: 20130627
  Serious: Yes (Disabling)
  Sender: FDA-Public Use
  Company Number: None

PATIENT
  Age: 24 Year
  Sex: Male
  Weight: 90.72 kg

DRUGS (2)
  1. LATUDA [Suspect]
     Indication: AUTISM
     Dosage: 1 every evening
sample Lot then prescription picked up 6-2-12
     Route: 048
     Dates: start: 20120501, end: 20120623
  2. LATUDA [Suspect]
     Indication: MOOD DISORDER NOS
     Dosage: 1 every evening
sample Lot then prescription picked up 6-2-12
     Route: 048
     Dates: start: 20120501, end: 20120623

REACTIONS (4)
  - Drug eruption [None]
  - Enamel anomaly [None]
  - Eye disorder [None]
  - Platelet disorder [None]
